FAERS Safety Report 24786818 (Version 1)
Quarter: 2024Q4

REPORT INFORMATION
  Report Type: Spontaneous
  Country: US (occurrence: US)
  Receive Date: 20241230
  Receipt Date: 20241230
  Transmission Date: 20250115
  Serious: No
  Sender: BIONPHARMA INC.
  Company Number: US-Bion-014621

PATIENT
  Sex: Female

DRUGS (1)
  1. LOPERAMIDE HYDROCHLORIDE [Suspect]
     Active Substance: LOPERAMIDE HYDROCHLORIDE
     Indication: Diarrhoea
     Dosage: 3 CAPLETS FOR 24HOUR
     Dates: start: 20241218

REACTIONS (2)
  - Inappropriate schedule of product administration [Unknown]
  - Chromaturia [Unknown]
